FAERS Safety Report 15209657 (Version 5)
Quarter: 2018Q3

REPORT INFORMATION
  Report Type: Report from Study
  Country: ES (occurrence: ES)
  Receive Date: 20180727
  Receipt Date: 20180828
  Transmission Date: 20181010
  Serious: Yes (Hospitalization, Other)
  Sender: FDA-Public Use
  Company Number: ES-TEVA-2018-ES-931240

PATIENT
  Age: 55 Year
  Sex: Female

DRUGS (9)
  1. PREGABALIN. [Concomitant]
     Active Substance: PREGABALIN
     Route: 048
     Dates: start: 20170510
  2. AVASTIN [Suspect]
     Active Substance: BEVACIZUMAB
     Indication: BREAST CANCER
     Route: 042
     Dates: start: 20170202
  3. ZOMETA [Concomitant]
     Active Substance: ZOLEDRONIC ACID
     Route: 048
     Dates: start: 20170202
  4. PACLITAXEL. [Suspect]
     Active Substance: PACLITAXEL
     Indication: BREAST CANCER
     Dosage: STRENGTH 6MG/ML
     Route: 042
     Dates: start: 20170202, end: 20170712
  5. AMOXICILLIN. [Concomitant]
     Active Substance: AMOXICILLIN
     Indication: TOOTHACHE
     Route: 048
     Dates: start: 20170508, end: 20170518
  6. BEVACIZUMAB. [Suspect]
     Active Substance: BEVACIZUMAB
     Indication: BREAST CANCER
     Route: 042
     Dates: start: 20170202
  7. ENANTYUM [Concomitant]
     Active Substance: DEXKETOPROFEN TROMETAMOL
     Indication: TOOTHACHE
     Route: 048
     Dates: start: 20170508, end: 20170518
  8. PARACETAMOL [Concomitant]
     Active Substance: ACETAMINOPHEN
     Indication: PYREXIA
     Dosage: 1 GRAM DAILY;
     Route: 048
     Dates: start: 20170203, end: 20170203
  9. VASELINE PURE [Concomitant]
     Active Substance: PETROLATUM
     Route: 061
     Dates: start: 20170403, end: 20170410

REACTIONS (28)
  - Rash [Recovered/Resolved]
  - Nail pigmentation [Recovered/Resolved]
  - Diarrhoea [Recovered/Resolved]
  - Gingival bleeding [Recovered/Resolved]
  - Abdominal pain upper [Recovered/Resolved with Sequelae]
  - Ligament rupture [Not Recovered/Not Resolved]
  - Pyrexia [Recovered/Resolved]
  - Pyrexia [Recovered/Resolved]
  - Hypertension [Recovered/Resolved]
  - Nail disorder [Recovering/Resolving]
  - Mouth ulceration [Recovered/Resolved]
  - Pain in extremity [Recovered/Resolved]
  - Pseudomonas infection [Recovered/Resolved]
  - Laryngitis [Recovered/Resolved]
  - Nasopharyngitis [Recovered/Resolved]
  - Musculoskeletal pain [Recovered/Resolved]
  - Hypertension [Recovered/Resolved]
  - Asthenia [Recovered/Resolved]
  - Epistaxis [Recovering/Resolving]
  - Skin hyperpigmentation [Recovered/Resolved]
  - Scab [Recovered/Resolved]
  - Helicobacter infection [Recovered/Resolved]
  - Neuropathy peripheral [Recovering/Resolving]
  - Diarrhoea [Recovered/Resolved]
  - Dysphonia [Recovered/Resolved]
  - Skin hyperpigmentation [Recovered/Resolved]
  - Tooth infection [Recovered/Resolved]
  - Erythema [Recovered/Resolved]

NARRATIVE: CASE EVENT DATE: 20170202
